FAERS Safety Report 19636141 (Version 1)
Quarter: 2021Q3

REPORT INFORMATION
  Report Type: Spontaneous
  Country: NL (occurrence: NL)
  Receive Date: 20210730
  Receipt Date: 20210730
  Transmission Date: 20211014
  Serious: Yes (Other)
  Sender: FDA-Public Use
  Company Number: NL-GLAXOSMITHKLINE-NL2021162645

PATIENT
  Sex: Male

DRUGS (1)
  1. IMIGRAN [Suspect]
     Active Substance: SUMATRIPTAN SUCCINATE
     Indication: MIGRAINE
     Dosage: 10 MG , (NASAL SPRAY, 10 MG (MILLIGRAMS),)
     Route: 065
     Dates: start: 2021

REACTIONS (1)
  - Deafness bilateral [Recovered/Resolved]
